FAERS Safety Report 4320028-X (Version None)
Quarter: 2004Q1

REPORT INFORMATION
  Report Type: 
  Country: None (occurrence: None)
  Receive Date: 20040319
  Receipt Date: 20030617
  Transmission Date: 20041129
  Serious: Yes (Hospitalization, Disabling)
  Sender: FDA-Public Use
  Company Number: WAES 0306USA02099

PATIENT
  Age: 44 Year
  Sex: Female
  Weight: 91 kg

DRUGS (5)
  1. OXYCODONE [Concomitant]
     Dates: start: 19990101, end: 20010101
  2. ZANTAC [Concomitant]
     Dates: start: 19920101
  3. VIOXX [Suspect]
     Indication: SCIATIC NERVE INJURY
     Route: 048
     Dates: start: 20000401, end: 20010601
  4. ULTRAM [Concomitant]
     Dates: start: 19990101, end: 20010101
  5. DIOVAN [Concomitant]
     Indication: HYPERTENSION
     Dates: start: 19980101, end: 20010101

REACTIONS (66)
  - ABDOMINAL DISTENSION [None]
  - ACUTE MYOCARDIAL INFARCTION [None]
  - ACUTE RESPIRATORY FAILURE [None]
  - AGITATION [None]
  - ANGINA PECTORIS [None]
  - ARTHRALGIA [None]
  - ATRIAL TACHYCARDIA [None]
  - BACK PAIN [None]
  - BACTERIA URINE IDENTIFIED [None]
  - BLOOD SODIUM INCREASED [None]
  - BRAIN HYPOXIA [None]
  - BREATH SOUNDS DECREASED [None]
  - CARDIAC ARREST [None]
  - CARDIAC FAILURE CONGESTIVE [None]
  - CARDIAC MURMUR [None]
  - CARDIOGENIC SHOCK [None]
  - CHEST PAIN [None]
  - CORONARY ARTERY ATHEROSCLEROSIS [None]
  - CORONARY ARTERY DISEASE [None]
  - CORONARY ARTERY OCCLUSION [None]
  - CORONARY ARTERY STENOSIS [None]
  - DILATATION VENTRICULAR [None]
  - DYSPNOEA AT REST [None]
  - ELECTROCARDIOGRAM QRS COMPLEX PROLONGED [None]
  - EMOTIONAL DISTRESS [None]
  - ENCEPHALOPATHY [None]
  - GALLOP RHYTHM PRESENT [None]
  - HAEMATOCRIT DECREASED [None]
  - HAEMATOMA [None]
  - HAEMOGLOBIN DECREASED [None]
  - HEART RATE ABNORMAL [None]
  - HEART SOUNDS ABNORMAL [None]
  - HEPATIC FAILURE [None]
  - HYPERCHOLESTEROLAEMIA [None]
  - HYPERPHOSPHATAEMIA [None]
  - HYPOKALAEMIA [None]
  - HYPONATRAEMIA [None]
  - HYPOPERFUSION [None]
  - INTERVERTEBRAL DISC PROTRUSION [None]
  - ISCHAEMIC CARDIOMYOPATHY [None]
  - ISCHAEMIC HEPATITIS [None]
  - LOSS OF CONSCIOUSNESS [None]
  - LUNG INFILTRATION [None]
  - MENTAL STATUS CHANGES [None]
  - MULTI-ORGAN FAILURE [None]
  - OEDEMA PERIPHERAL [None]
  - ORTHOPNOEA [None]
  - PACEMAKER GENERATED RHYTHM [None]
  - PAIN [None]
  - PANIC ATTACK [None]
  - PANIC DISORDER [None]
  - PLEURAL EFFUSION [None]
  - PROTEUS INFECTION [None]
  - PULMONARY OEDEMA [None]
  - PUPIL FIXED [None]
  - PYREXIA [None]
  - RALES [None]
  - RENAL FAILURE [None]
  - RENAL FAILURE ACUTE [None]
  - SCREAMING [None]
  - THROMBOCYTOPENIA [None]
  - URINARY TRACT INFECTION [None]
  - VENTRICULAR DYSFUNCTION [None]
  - VENTRICULAR FIBRILLATION [None]
  - VENTRICULAR TACHYCARDIA [None]
  - VISUAL DISTURBANCE [None]
